FAERS Safety Report 10067073 (Version 1)
Quarter: 2014Q2

REPORT INFORMATION
  Report Type: Report from Study
  Country: US (occurrence: US)
  Receive Date: 20140409
  Receipt Date: 20140409
  Transmission Date: 20141212
  Serious: Yes (Hospitalization)
  Sender: FDA-Public Use
  Company Number: US-ROCHE-1376746

PATIENT
  Age: 66 Year
  Sex: Female
  Weight: 70 kg

DRUGS (5)
  1. BEVACIZUMAB [Suspect]
     Indication: OVARIAN EPITHELIAL CANCER
     Dosage: CYCLE 2-6?LAST ADMINISTERED DOSE: 08/JAN/2014
     Route: 042
     Dates: start: 20121031
  2. ABT-888 [Suspect]
     Indication: OVARIAN EPITHELIAL CANCER
     Dosage: IN CYCLE 1 AND CYCLE 2-6
     Route: 048
  3. PACLITAXEL [Suspect]
     Indication: OVARIAN EPITHELIAL CANCER
     Dosage: CYCLE 1 AND CYCLE 2-6
     Route: 042
  4. CARBOPLATIN [Suspect]
     Indication: OVARIAN EPITHELIAL CANCER
     Dosage: AUC=6?CYCLE 1 AND CYCLE 2-6
     Route: 042
  5. LISINOPRIL [Suspect]
     Indication: PRODUCT USED FOR UNKNOWN INDICATION
     Route: 065

REACTIONS (1)
  - Hyponatraemia [Recovering/Resolving]
